FAERS Safety Report 23140126 (Version 5)
Quarter: 2024Q1

REPORT INFORMATION
  Report Type: Report from Study
  Country: KR (occurrence: KR)
  Receive Date: 20231102
  Receipt Date: 20240206
  Transmission Date: 20240409
  Serious: Yes (Death, Hospitalization)
  Sender: FDA-Public Use
  Company Number: KR-ROCHE-3446198

PATIENT
  Age: 54 Year
  Sex: Male
  Weight: 56.4 kg

DRUGS (13)
  1. ERLOTINIB [Suspect]
     Active Substance: ERLOTINIB
     Indication: Colorectal cancer metastatic
     Route: 048
     Dates: start: 20231013, end: 20231027
  2. BEVACIZUMAB [Suspect]
     Active Substance: BEVACIZUMAB
     Indication: Colorectal cancer metastatic
     Route: 042
     Dates: start: 20231013, end: 20231013
  3. MUCOBARRIER [Concomitant]
     Indication: Product used for unknown indication
     Route: 048
     Dates: start: 20230404, end: 20231028
  4. Diclomed [Concomitant]
     Indication: Product used for unknown indication
     Route: 065
     Dates: start: 20230516, end: 20231028
  5. Diclomed [Concomitant]
     Route: 065
     Dates: start: 20231107, end: 20231208
  6. NALOXONE HYDROCHLORIDE\OXYCODONE HYDROCHLORIDE [Concomitant]
     Active Substance: NALOXONE HYDROCHLORIDE\OXYCODONE HYDROCHLORIDE
     Indication: Product used for unknown indication
     Dosage: UNK UNK, AS NEEDED (5/2.5 MG)
     Route: 048
     Dates: start: 20230919, end: 20231016
  7. Dulackhan easy [Concomitant]
     Indication: Product used for unknown indication
     Route: 048
     Dates: start: 20231013, end: 20231113
  8. MINOCIN [Concomitant]
     Active Substance: MINOCYCLINE HYDROCHLORIDE
     Indication: Product used for unknown indication
     Dosage: UNK UNK, ONCE DAILY (50MG 2CAPSULE)
     Route: 048
     Dates: start: 20231013, end: 20231028
  9. EXFORTE [Concomitant]
     Indication: Product used for unknown indication
     Dosage: UNK UNK, UNKNOWN FREQ.
     Route: 065
     Dates: end: 20231104
  10. VEMLIDY [Concomitant]
     Active Substance: TENOFOVIR ALAFENAMIDE FUMARATE
     Indication: Product used for unknown indication
     Dosage: UNK UNK, UNKNOWN FREQ.
     Route: 065
     Dates: end: 20231028
  11. VEMLIDY [Concomitant]
     Active Substance: TENOFOVIR ALAFENAMIDE FUMARATE
     Route: 048
     Dates: start: 20231108, end: 20231208
  12. SYNTHROID [Concomitant]
     Active Substance: LEVOTHYROXINE SODIUM
     Indication: Product used for unknown indication
     Dosage: UNK UNK, UNKNOWN FREQ.
     Route: 065
     Dates: end: 20231104
  13. SYNTHROID [Concomitant]
     Active Substance: LEVOTHYROXINE SODIUM
     Route: 048
     Dates: start: 20231108, end: 20231208

REACTIONS (2)
  - Haemorrhage [Fatal]
  - Nausea [Not Recovered/Not Resolved]

NARRATIVE: CASE EVENT DATE: 20231017
